FAERS Safety Report 9027458 (Version 2)
Quarter: 2013Q4

REPORT INFORMATION
  Report Type: Spontaneous
  Country: US (occurrence: US)
  Receive Date: 20130124
  Receipt Date: 20131022
  Transmission Date: 20140711
  Serious: No
  Sender: FDA-Public Use
  Company Number: US-009507513-1301USA008684

PATIENT
  Sex: Female

DRUGS (5)
  1. PEGINTRON [Suspect]
     Indication: HEPATITIS C
     Dosage: 0.5 CC (REDIPEN)
     Dates: start: 20121114
  2. PEGINTRON [Suspect]
     Dosage: 0.3 CC
     Dates: end: 20130510
  3. REBETOL [Suspect]
     Indication: HEPATITIS C
     Dosage: 5 DF, UNK
     Route: 048
     Dates: start: 20121114
  4. REBETOL [Suspect]
     Dosage: 3 DF, UNK
     Route: 048
     Dates: end: 20130510
  5. VICTRELIS [Suspect]
     Indication: HEPATITIS C
     Dosage: UNK
     Route: 048
     Dates: start: 20121212, end: 20130510

REACTIONS (8)
  - Somnolence [Unknown]
  - Unevaluable event [Unknown]
  - Anaemia [Unknown]
  - Pruritus [Unknown]
  - Diarrhoea [Unknown]
  - Dry skin [Unknown]
  - Malaise [Unknown]
  - Dizziness [Unknown]
